FAERS Safety Report 23719355 (Version 1)
Quarter: 2024Q2

REPORT INFORMATION
  Report Type: Spontaneous
  Country: FR (occurrence: FR)
  Receive Date: 20240408
  Receipt Date: 20240408
  Transmission Date: 20240716
  Serious: Yes (Other)
  Sender: FDA-Public Use
  Company Number: None

PATIENT
  Age: 30 Year
  Sex: Male
  Weight: 68 kg

DRUGS (8)
  1. SUFENTANIL CITRATE [Suspect]
     Active Substance: SUFENTANIL CITRATE
     Indication: Induction of anaesthesia
     Dosage: 20 MICROGRAM, QD
     Route: 042
     Dates: start: 20230802, end: 20230802
  2. ROCURONIUM [Suspect]
     Active Substance: ROCURONIUM BROMIDE
     Indication: Induction of anaesthesia
     Dosage: 50 MILLIGRAM, QD
     Route: 042
     Dates: start: 20230802, end: 20230802
  3. DEXAMETHASONE [Suspect]
     Active Substance: DEXAMETHASONE
     Indication: Adrenocortical steroid therapy
     Dosage: 8 MILLIGRAM, QD
     Route: 042
     Dates: start: 20230802, end: 20230802
  4. XYLOCAINE [Suspect]
     Active Substance: LIDOCAINE HYDROCHLORIDE
     Indication: Induction of anaesthesia
     Dosage: 120 MILLIGRAM, QD
     Route: 042
     Dates: start: 20230802, end: 20230802
  5. KETAMINE [Suspect]
     Active Substance: KETAMINE
     Indication: Induction of anaesthesia
     Dosage: 35 MILLIGRAM, QD
     Route: 042
     Dates: start: 20230802, end: 20230802
  6. PROPOFOL LIPURO [Suspect]
     Active Substance: PROPOFOL
     Indication: Induction of anaesthesia
     Dosage: 200 MILLIGRAM, QD
     Route: 042
     Dates: start: 20230802, end: 20230802
  7. CEFOXITIN SODIUM [Suspect]
     Active Substance: CEFOXITIN SODIUM
     Indication: Antibiotic prophylaxis
     Dosage: 2 GRAM, QD
     Route: 042
     Dates: start: 20230802, end: 20230802
  8. YUFLYMA [Concomitant]
     Active Substance: ADALIMUMAB-AATY
     Dosage: UNK
     Route: 065

REACTIONS (1)
  - Urticaria [Recovered/Resolved]

NARRATIVE: CASE EVENT DATE: 20230802
